FAERS Safety Report 4450466-6 (Version None)
Quarter: 2004Q3

REPORT INFORMATION
  Report Type: 
  Country: None (occurrence: None)
  Receive Date: 20040915
  Receipt Date: 20040830
  Transmission Date: 20050211
  Serious: Yes (Hospitalization)
  Sender: FDA-Public Use
  Company Number: 208878

PATIENT
  Age: 64 Year
  Sex: Female
  Weight: 66 kg

DRUGS (5)
  1. HERCEPTIN [Suspect]
     Indication: BREAST CANCER METASTATIC
     Dosage: SEE IMAGE
     Route: 042
     Dates: start: 20040419, end: 20040419
  2. HERCEPTIN [Suspect]
     Indication: BREAST CANCER METASTATIC
     Dosage: SEE IMAGE
     Route: 042
     Dates: start: 20040426
  3. CYCLOPHOSPHAMIDE [Suspect]
     Indication: BREAST CANCER METASTATIC
     Dosage: 600 MG/M2, UNK, INTRAVENOUS
     Route: 042
     Dates: start: 20040419
  4. METHOTREXATE [Suspect]
     Indication: BREAST CANCER METASTATIC
     Dosage: 40 MG/M2, UNK, INTRAVENOUS
     Route: 042
     Dates: start: 20040419
  5. FLUOROURACIL [Suspect]
     Indication: BREAST CANCER METASTATIC
     Dosage: 600 MG/M2, UNK, UNK
     Dates: start: 20040419

REACTIONS (1)
  - FEBRILE NEUTROPENIA [None]
